FAERS Safety Report 10052524 (Version 1)
Quarter: 2014Q2

REPORT INFORMATION
  Report Type: Spontaneous
  Country: US (occurrence: None)
  Receive Date: 20140401
  Receipt Date: 20140401
  Transmission Date: 20141212
  Serious: Yes (Other)
  Sender: FDA-Public Use
  Company Number: None

PATIENT
  Age: 52 Year
  Sex: Male

DRUGS (4)
  1. METOPROLOL SUCCINATE [Suspect]
     Indication: BLOOD PRESSURE
     Dosage: 1 TAB ONCE DAILY BY MOUTH
     Route: 048
     Dates: start: 20140209, end: 20140330
  2. METOPROLOL ER 50 [Concomitant]
  3. METFORMIN 500 [Concomitant]
  4. OMEPRAZOLE [Concomitant]

REACTIONS (4)
  - Peripheral swelling [None]
  - Swelling face [None]
  - Product substitution issue [None]
  - Product quality issue [None]
